FAERS Safety Report 5488329-X (Version None)
Quarter: 2007Q4

REPORT INFORMATION
  Report Type: 
  Country: None (occurrence: None)
  Receive Date: 20071017
  Receipt Date: 20071012
  Transmission Date: 20080405
  Serious: Yes (Life-Threatening, Hospitalization, Disabling, Other)
  Sender: FDA-Public Use
  Company Number: A0684780A

PATIENT
  Age: 56 Year
  Sex: Male
  Weight: 75 kg

DRUGS (11)
  1. AVANDIA [Suspect]
     Dosage: 4MG TWICE PER DAY
     Route: 048
     Dates: start: 20040101, end: 20070101
  2. BYETTA [Suspect]
     Dosage: 5MCG TWICE PER DAY
  3. PRANDIN [Suspect]
  4. METFORMIN [Concomitant]
  5. LIPITOR [Concomitant]
     Dosage: 10MG PER DAY
     Route: 048
  6. ASPIRIN [Concomitant]
     Route: 048
  7. ALTACE [Concomitant]
     Dosage: 10MG PER DAY
     Route: 048
  8. TENORMIN [Concomitant]
     Dosage: 25MG PER DAY
     Route: 048
  9. ACTOS [Concomitant]
     Dates: start: 20070101
  10. JANUVIA [Concomitant]
  11. SYNTHROID [Concomitant]
     Dosage: .5TAB PER DAY

REACTIONS (5)
  - CARDIAC ARREST [None]
  - EJECTION FRACTION DECREASED [None]
  - HYPOGLYCAEMIA [None]
  - NAUSEA [None]
  - PERFORMANCE STATUS DECREASED [None]
